FAERS Safety Report 8483667-0 (Version None)
Quarter: 2012Q3

REPORT INFORMATION
  Report Type: 
  Country: None (occurrence: None)
  Receive Date: 20120703
  Receipt Date: 20120626
  Transmission Date: 20120928
  Serious: Yes (Hospitalization)
  Sender: FDA-Public Use
  Company Number: NL-AMGEN-NLDCT2012018851

PATIENT
  Age: 65 Year
  Sex: Female
  Weight: 75 kg

DRUGS (14)
  1. VINCRISTINE [Concomitant]
     Indication: DIFFUSE LARGE B-CELL LYMPHOMA
     Dosage: 2 MG, Q2WK
     Dates: start: 20120223
  2. ZOLPIDEM TARTATE [Concomitant]
     Indication: SLEEP DISORDER
     Dosage: 10 MG, UNK
     Route: 048
     Dates: start: 20111031
  3. ACETAMINOPHEN [Concomitant]
     Indication: PAIN
     Dosage: UNK UNK, PRN
     Route: 048
  4. ENALAPRIL MALEATE [Concomitant]
     Indication: HYPERTENSION
     Dosage: 10 MG, UNK
     Dates: start: 20111031
  5. TRAMADOL HCL [Concomitant]
     Indication: PAIN
     Dosage: 50 MG, PRN
  6. EMEND [Concomitant]
     Indication: PROPHYLAXIS
     Dosage: 125.8 MG, UNK
     Route: 048
     Dates: start: 20120223
  7. DOXORUBICIN HCL [Concomitant]
     Indication: DIFFUSE LARGE B-CELL LYMPHOMA
     Dosage: 95 MG, Q2WK
     Route: 042
     Dates: start: 20120223
  8. CARBASALATE CALCIUM [Concomitant]
     Dosage: 100 MG, UNK
     Route: 048
  9. PANTOPRAZOLE [Concomitant]
     Dosage: 40 MG, UNK
     Route: 048
  10. PEGFILGRASTIM [Suspect]
     Indication: DIFFUSE LARGE B-CELL LYMPHOMA
     Dosage: 6 MG, Q2WK
     Route: 058
     Dates: start: 20120224
  11. RITUXIMAB [Concomitant]
     Indication: DIFFUSE LARGE B-CELL LYMPHOMA
     Dosage: 700 MG, Q2WK
     Route: 042
     Dates: start: 20120222
  12. PREDNISONE TAB [Concomitant]
     Indication: DIFFUSE LARGE B-CELL LYMPHOMA
     Dosage: 100 MG, QWK
     Route: 042
     Dates: start: 20120223
  13. CYCLOPHOSPHAMIDE [Concomitant]
     Indication: DIFFUSE LARGE B-CELL LYMPHOMA
     Dosage: 1400 MG, Q2WK
     Route: 042
     Dates: start: 20120223
  14. HYDROCHLOROTHIAZDE TAB [Concomitant]
     Indication: HYPERTENSION
     Dosage: 12.5 MG, UNK
     Route: 048
     Dates: start: 20111031

REACTIONS (3)
  - ABDOMINAL PAIN [None]
  - FEBRILE NEUTROPENIA [None]
  - DIARRHOEA [None]
